FAERS Safety Report 9372271 (Version 3)
Quarter: 2015Q2

REPORT INFORMATION
  Report Type: Spontaneous
  Country: JP (occurrence: JP)
  Receive Date: 20130627
  Receipt Date: 20150527
  Transmission Date: 20150821
  Serious: Yes (Other)
  Sender: FDA-Public Use
  Company Number: PHHY2013JP064041

PATIENT
  Age: 80 Year
  Sex: Male

DRUGS (3)
  1. PREDONINE [Concomitant]
     Active Substance: PREDNISOLONE\PREDNISOLONE ACETATE\PREDNISOLONE SODIUM SUCCINATE
     Indication: ALLERGY TO METALS
     Dosage: 20 MG, UNK
     Route: 048
  2. PREDONINE [Concomitant]
     Active Substance: PREDNISOLONE\PREDNISOLONE ACETATE\PREDNISOLONE SODIUM SUCCINATE
     Indication: RASH
  3. CICLOSPORIN [Suspect]
     Active Substance: CYCLOSPORINE
     Indication: HYPERSENSITIVITY
     Route: 048

REACTIONS (2)
  - Renal failure [Unknown]
  - Off label use [Unknown]
